FAERS Safety Report 8810443 (Version 1)
Quarter: 2012Q4

REPORT INFORMATION
  Report Type: 
  Country: US (occurrence: US)
  Receive Date: 20120927
  Receipt Date: 20120927
  Transmission Date: 20130627
  Serious: No
  Sender: FDA-Public Use
  Company Number: US-009507513-1209USA008082

PATIENT
  Age: 57 Year
  Sex: Female

DRUGS (1)
  1. VICTRELIS [Suspect]
     Dosage: UNK
     Route: 048
     Dates: start: 20120911

REACTIONS (1)
  - Abdominal pain upper [Not Recovered/Not Resolved]
